FAERS Safety Report 7269749-X (Version None)
Quarter: 2011Q1

REPORT INFORMATION
  Report Type: 
  Country: None (occurrence: None)
  Receive Date: 20110202
  Receipt Date: 20110126
  Transmission Date: 20110831
  Serious: Yes (Hospitalization)
  Sender: FDA-Public Use
  Company Number: DK-PFIZER INC-2011019136

PATIENT
  Age: 64 Year
  Sex: Male

DRUGS (7)
  1. ELTROXIN [Concomitant]
     Dosage: 100 UG, 1X/DAY
  2. SOMATROPIN [Suspect]
     Indication: HYPOPITUITARISM
     Dosage: 0.2 MG, 1X/DAY
  3. SIMVASTATIN [Concomitant]
     Dosage: 40 MG, 1X/DAY
  4. TESTOVIRON [Concomitant]
     Dosage: 135 MG, UNK
  5. FERRO C [Concomitant]
     Dosage: 1 DF, 1X/DAY
  6. PANTOPRAZOLE [Concomitant]
     Dosage: 40 MG, 1X/DAY
  7. HYDROCORTISON [Concomitant]

REACTIONS (1)
  - PITUITARY TUMOUR BENIGN [None]
